FAERS Safety Report 14577385 (Version 1)
Quarter: 2018Q1

REPORT INFORMATION
  Report Type: Report from Study
  Country: NL (occurrence: NL)
  Receive Date: 20180227
  Receipt Date: 20180227
  Transmission Date: 20180509
  Serious: Yes (Other)
  Sender: FDA-Public Use
  Company Number: NL-AMGEN-NLDSL2018025210

PATIENT
  Age: 66 Year
  Sex: Female

DRUGS (2)
  1. XGEVA [Suspect]
     Active Substance: DENOSUMAB
     Indication: PROPHYLAXIS
     Dosage: 120 MG (1.7ML), Q4WK
     Route: 058
  2. ANASTROZOL [Concomitant]
     Active Substance: ANASTROZOLE

REACTIONS (6)
  - Feeling abnormal [Unknown]
  - Syncope [Unknown]
  - Dizziness [Unknown]
  - Decreased appetite [Unknown]
  - Gait disturbance [Unknown]
  - Loss of consciousness [Unknown]

NARRATIVE: CASE EVENT DATE: 20180216
